FAERS Safety Report 7824833-4 (Version None)
Quarter: 2011Q4

REPORT INFORMATION
  Report Type: 
  Country: None (occurrence: None)
  Receive Date: 20111019
  Receipt Date: 20110209
  Transmission Date: 20120403
  Serious: No
  Sender: FDA-Public Use
  Company Number: US-BRISTOL-MYERS SQUIBB COMPANY-15539976

PATIENT
  Age: 54 Year
  Sex: Female

DRUGS (3)
  1. AVALIDE [Suspect]
  2. CARTIA XT [Concomitant]
  3. CRESTOR [Concomitant]

REACTIONS (2)
  - HEADACHE [None]
  - MALAISE [None]
